FAERS Safety Report 7131692-4 (Version None)
Quarter: 2010Q4

REPORT INFORMATION
  Report Type: 
  Country: None (occurrence: None)
  Receive Date: 20101201
  Receipt Date: 20101118
  Transmission Date: 20110411
  Serious: Yes (Other)
  Sender: FDA-Public Use
  Company Number: TH-B.I. PHARMACEUTICALS,INC./RIDGEFIELD-2010-DE-03853GD

PATIENT

DRUGS (4)
  1. NEVIRAPINE [Suspect]
     Indication: HIV INFECTION
     Dosage: 200 MG
  2. NEVIRAPINE [Suspect]
     Dosage: 400 MG
  3. STAVUDINE [Suspect]
     Indication: HIV INFECTION
     Dosage: 60 MG FOR BODY WEIGHT {60 KG AND 80 MG FOR BODY WEIGHT }60 KG
  4. LAMIVUDINE [Suspect]
     Indication: HIV INFECTION

REACTIONS (2)
  - DISEASE RECURRENCE [None]
  - TUBERCULOSIS [None]
